FAERS Safety Report 12597001 (Version 1)
Quarter: 2016Q3

REPORT INFORMATION
  Report Type: Spontaneous
  Country: US (occurrence: US)
  Receive Date: 20160727
  Receipt Date: 20160727
  Transmission Date: 20161109
  Serious: No
  Sender: FDA-Public Use
  Company Number: US-SUN PHARMACEUTICAL INDUSTRIES LTD-2015US-108306

PATIENT
  Age: 45 Year
  Sex: Male

DRUGS (3)
  1. IBUPROFEN. [Concomitant]
     Active Substance: IBUPROFEN
     Indication: PAIN
     Dosage: 800 MG
     Route: 065
  2. TRAMADOL. [Suspect]
     Active Substance: TRAMADOL
     Indication: BACK PAIN
     Dosage: ON WEDNESDAY NIGHT, ONE YESTERDAY MORNING, AND ONE LAST NIGHT, AND ONE THIS MORING
     Route: 065
     Dates: start: 20151021
  3. TRAMADOL. [Suspect]
     Active Substance: TRAMADOL
     Indication: PAIN IN EXTREMITY

REACTIONS (1)
  - Drug ineffective [Unknown]

NARRATIVE: CASE EVENT DATE: 20151021
